FAERS Safety Report 17918203 (Version 1)
Quarter: 2020Q2

REPORT INFORMATION
  Report Type: Spontaneous
  Country: US (occurrence: US)
  Receive Date: 20200619
  Receipt Date: 20200619
  Transmission Date: 20200714
  Serious: Yes (Other)
  Sender: FDA-Public Use
  Company Number: US-PFIZER INC-2010060429

PATIENT
  Age: 20 Month
  Sex: Male

DRUGS (5)
  1. AMOXICILLIN. [Suspect]
     Active Substance: AMOXICILLIN
     Indication: EAR INFECTION
     Dosage: UNK
     Route: 048
     Dates: start: 20100429
  2. CHILDRENS MOTRIN [Suspect]
     Active Substance: IBUPROFEN
     Indication: PYREXIA
     Dosage: 0.875 ML, UNK
     Route: 048
     Dates: end: 20100501
  3. CHILDRENS MOTRIN [Suspect]
     Active Substance: IBUPROFEN
     Indication: EAR INFECTION
     Dosage: 1.25 ML, UNK
     Route: 048
  4. TYLENOL INFANTS DROPS [Suspect]
     Active Substance: ACETAMINOPHEN
     Indication: EAR INFECTION
     Dosage: 0.4 ML, UNK
     Route: 048
  5. TYLENOL INFANTS DROPS [Suspect]
     Active Substance: ACETAMINOPHEN
     Indication: PYREXIA
     Dosage: 0.8 ML, UNK
     Route: 048

REACTIONS (3)
  - Liver injury [Not Recovered/Not Resolved]
  - Recalled product administered [Unknown]
  - Skin discolouration [Recovering/Resolving]

NARRATIVE: CASE EVENT DATE: 20100502
